FAERS Safety Report 4312592-1 (Version None)
Quarter: 2004Q1

REPORT INFORMATION
  Report Type: 
  Country: None (occurrence: None)
  Receive Date: 20040303
  Receipt Date: 20030407
  Transmission Date: 20041129
  Serious: Yes (Other)
  Sender: FDA-Public Use
  Company Number: KII-2003-0007476

PATIENT
  Age: 22 Year
  Sex: Male

DRUGS (1)
  1. MS CONTIN [Suspect]

REACTIONS (1)
  - LOSS OF CONSCIOUSNESS [None]
